FAERS Safety Report 9265923 (Version 1)
Quarter: 2013Q2

REPORT INFORMATION
  Report Type: Spontaneous
  Country: US (occurrence: US)
  Receive Date: 20130501
  Receipt Date: 20130501
  Transmission Date: 20140414
  Serious: Yes (Other)
  Sender: FDA-Public Use
  Company Number: CHPA2013US007039

PATIENT
  Sex: Female

DRUGS (2)
  1. THERAFLU VAPOR PATCH [Suspect]
     Indication: ASTHMA
     Dosage: UNK, UNK
  2. THERAFLU VAPOR PATCH [Suspect]
     Indication: HYPERSENSITIVITY

REACTIONS (4)
  - Asthma [Unknown]
  - Disease recurrence [Unknown]
  - Therapeutic response unexpected [Unknown]
  - Off label use [Unknown]
